FAERS Safety Report 18910029 (Version 1)
Quarter: 2021Q1

REPORT INFORMATION
  Report Type: Spontaneous
  Country: US (occurrence: US)
  Receive Date: 20210218
  Receipt Date: 20210218
  Transmission Date: 20210420
  Serious: No
  Sender: FDA-Public Use
  Company Number: None

PATIENT
  Sex: Female

DRUGS (1)
  1. RETACRIT [Suspect]
     Active Substance: EPOETIN ALFA-EPBX
     Indication: RENAL TRANSPLANT
     Dosage: ?          OTHER STRENGTH:10,000U/ML;OTHER DOSE:20,000 UNITS;?
     Route: 058
     Dates: start: 20200729

REACTIONS (2)
  - Haemoglobin decreased [None]
  - Therapeutic product effect decreased [None]
